FAERS Safety Report 11459426 (Version 2)
Quarter: 2015Q4

REPORT INFORMATION
  Report Type: Spontaneous
  Country: US (occurrence: US)
  Receive Date: 20150904
  Receipt Date: 20151210
  Transmission Date: 20160304
  Serious: No
  Sender: FDA-Public Use
  Company Number: US-JNJFOC-20150813804

PATIENT
  Sex: Male
  Weight: 97.52 kg

DRUGS (2)
  1. INH [Concomitant]
     Active Substance: ISONIAZID
     Route: 065
  2. STELARA [Suspect]
     Active Substance: USTEKINUMAB
     Indication: PSORIASIS
     Route: 058

REACTIONS (1)
  - Tuberculin test positive [Recovered/Resolved]
